FAERS Safety Report 20517150 (Version 1)
Quarter: 2022Q1

REPORT INFORMATION
  Report Type: Spontaneous
  Country: US (occurrence: US)
  Receive Date: 20220225
  Receipt Date: 20220225
  Transmission Date: 20220423
  Serious: No
  Sender: FDA-Public Use
  Company Number: US-ORGANON-O2202USA001220

PATIENT
  Age: 89 Year
  Sex: Female

DRUGS (1)
  1. ASMANEX [Suspect]
     Active Substance: MOMETASONE FUROATE
     Dosage: 1 TIME PER DAY (30 DOSE COUNTER)
     Dates: end: 202202

REACTIONS (5)
  - Device malfunction [Unknown]
  - Poor quality device used [Unknown]
  - Product dose omission issue [Unknown]
  - Circumstance or information capable of leading to medication error [Unknown]
  - No adverse event [Unknown]

NARRATIVE: CASE EVENT DATE: 20220210
